FAERS Safety Report 13085573 (Version 1)
Quarter: 2017Q1

REPORT INFORMATION
  Report Type: Spontaneous
  Country: US (occurrence: US)
  Receive Date: 20170103
  Receipt Date: 20170103
  Transmission Date: 20170428
  Serious: Yes (Other)
  Sender: FDA-Public Use
  Company Number: None

PATIENT
  Age: 30 Year
  Sex: Female
  Weight: 85.5 kg

DRUGS (2)
  1. MUSCLE RUB ULTRA STRENGTH CVS [Suspect]
     Active Substance: CAMPHOR (SYNTHETIC)\MENTHOL\METHYL SALICYLATE
     Indication: BACK PAIN
     Dosage: QUANTITY:2 OUNCE(S);?
     Route: 061
     Dates: start: 20170102, end: 20170103
  2. MUSCLE RUB ULTRA STRENGTH CVS [Suspect]
     Active Substance: CAMPHOR (SYNTHETIC)\MENTHOL\METHYL SALICYLATE
     Indication: PAIN IN EXTREMITY
     Dosage: QUANTITY:2 OUNCE(S);?
     Route: 061
     Dates: start: 20170102, end: 20170103

REACTIONS (1)
  - Application site pain [None]

NARRATIVE: CASE EVENT DATE: 20170103
